FAERS Safety Report 9549408 (Version 1)
Quarter: 2013Q3

REPORT INFORMATION
  Report Type: Spontaneous
  Country: US (occurrence: US)
  Receive Date: 20130924
  Receipt Date: 20130924
  Transmission Date: 20140515
  Serious: Yes (Other)
  Sender: FDA-Public Use
  Company Number: US-PFIZER INC-2013274488

PATIENT
  Age: 43 Year
  Sex: Female
  Weight: 63.04 kg

DRUGS (3)
  1. NEURONTIN [Suspect]
     Indication: NEURALGIA
     Dosage: 300 MG, 2X/DAY
  2. GABAPENTIN [Suspect]
     Indication: NEURALGIA
     Dosage: 300 MG, 2X/DAY
     Dates: start: 2011, end: 2012
  3. TRAMADOL [Concomitant]
     Dosage: 50 MG, AS NEEDED

REACTIONS (2)
  - Back disorder [Unknown]
  - Drug ineffective [Unknown]
